FAERS Safety Report 16533566 (Version 2)
Quarter: 2019Q3

REPORT INFORMATION
  Report Type: Report from Study
  Country: None (occurrence: BR)
  Receive Date: 20190704
  Receipt Date: 20190928
  Transmission Date: 20191004
  Serious: Yes (Other)
  Sender: FDA-Public Use
  Company Number: BR-ABBVIE-19K-020-2842166-00

PATIENT
  Sex: Female

DRUGS (1)
  1. HUMIRA [Suspect]
     Active Substance: ADALIMUMAB
     Indication: RHEUMATOID ARTHRITIS
     Route: 058
     Dates: start: 20100202

REACTIONS (5)
  - Deafness transitory [Unknown]
  - Chondropathy [Unknown]
  - Feeling of despair [Unknown]
  - Gait disturbance [Unknown]
  - Spinal disorder [Unknown]
